FAERS Safety Report 7440599-4 (Version None)
Quarter: 2011Q2

REPORT INFORMATION
  Report Type: 
  Country: None (occurrence: None)
  Receive Date: 20110427
  Receipt Date: 20110420
  Transmission Date: 20111010
  Serious: Yes (Hospitalization)
  Sender: FDA-Public Use
  Company Number: B0712353A

PATIENT
  Sex: Male

DRUGS (1)
  1. AVANDIA [Suspect]
     Indication: DIABETES MELLITUS
     Route: 048
     Dates: end: 20030320

REACTIONS (6)
  - CATHETERISATION CARDIAC [None]
  - RENAL FAILURE [None]
  - CARDIOVASCULAR DISORDER [None]
  - HYPERTENSION [None]
  - OBSTRUCTION [None]
  - HYPERLIPIDAEMIA [None]
